FAERS Safety Report 4707812-5 (Version None)
Quarter: 2005Q2

REPORT INFORMATION
  Report Type: 
  Country: None (occurrence: None)
  Receive Date: 20050629
  Receipt Date: 20050316
  Transmission Date: 20051028
  Serious: No
  Sender: FDA-Public Use
  Company Number: 05P-163-0294208-00

PATIENT
  Age: 69 Year
  Sex: Female
  Weight: 114 kg

DRUGS (16)
  1. HUMIRA [Suspect]
     Indication: RHEUMATOID ARTHRITIS
     Dosage: 40 MG, 1 IN 2 WK, SUBCUTANEOUS
     Route: 058
     Dates: start: 20040101
  2. ALBUTEROL PALMOCORT [Concomitant]
  3. LOSARTAN POTASSIUM [Concomitant]
  4. GLIPIZIDE [Concomitant]
  5. POTASSIUM CHLORIDE [Concomitant]
  6. IRON [Concomitant]
  7. OMEPRAZOLE [Concomitant]
  8. AMLODIPINE BESYLATE [Concomitant]
  9. LEVOTHYROXINE SODIUM [Concomitant]
  10. FUROSEMIDE [Concomitant]
  11. SPIRONOLACTONE [Concomitant]
  12. ATENOLOL [Concomitant]
  13. ATORVASTATIN CALCIUM [Concomitant]
  14. ASPIRIN [Concomitant]
  15. OXYCODONE HCL [Concomitant]
  16. OXYGEN [Concomitant]

REACTIONS (4)
  - ARTHRALGIA [None]
  - DRUG EFFECT DECREASED [None]
  - INJECTION SITE PAIN [None]
  - RHEUMATOID ARTHRITIS [None]
